FAERS Safety Report 16054071 (Version 1)
Quarter: 2019Q1

REPORT INFORMATION
  Report Type: Spontaneous
  Country: CA (occurrence: CA)
  Receive Date: 20190308
  Receipt Date: 20190308
  Transmission Date: 20190418
  Serious: Yes (Life-Threatening)
  Sender: FDA-Public Use
  Company Number: CA-PFIZER INC-2019099526

PATIENT
  Age: 67 Year
  Sex: Female
  Weight: 95 kg

DRUGS (8)
  1. AMLODIPINE [Concomitant]
     Active Substance: AMLODIPINE BESYLATE
     Dosage: UNK
  2. ACETAMINOPHEN. [Concomitant]
     Active Substance: ACETAMINOPHEN
     Dosage: UNK
  3. EZETROL [Concomitant]
     Active Substance: EZETIMIBE
     Dosage: UNK
  4. SPIRONOLACTONE. [Suspect]
     Active Substance: SPIRONOLACTONE
     Indication: HYPERTENSION
     Dosage: 25 MG, 1X/DAY
     Route: 048
  5. ASA [Concomitant]
     Active Substance: ASPIRIN
     Dosage: UNK
  6. CLOBETASOL PROPIONATE. [Concomitant]
     Active Substance: CLOBETASOL PROPIONATE
     Dosage: UNK
  7. IBUPROFEN. [Concomitant]
     Active Substance: IBUPROFEN
     Dosage: UNK
  8. OMEPRAZOLE. [Concomitant]
     Active Substance: OMEPRAZOLE
     Dosage: UNK

REACTIONS (13)
  - Dyspnoea [Recovered/Resolved]
  - Reaction to excipient [Recovered/Resolved]
  - Sneezing [Recovered/Resolved]
  - Eye swelling [Recovered/Resolved]
  - Lethargy [Recovered/Resolved]
  - Product substitution issue [Recovered/Resolved]
  - Nasal congestion [Recovered/Resolved]
  - Arthralgia [Recovered/Resolved]
  - Influenza like illness [Recovered/Resolved]
  - Malaise [Recovered/Resolved]
  - Decreased appetite [Recovered/Resolved]
  - Eye allergy [Recovered/Resolved]
  - Tinnitus [Recovered/Resolved]
